FAERS Safety Report 10067352 (Version 2)
Quarter: 2014Q2

REPORT INFORMATION
  Report Type: Spontaneous
  Country: US (occurrence: None)
  Receive Date: 20140407
  Receipt Date: 20140520
  Transmission Date: 20141212
  Serious: Yes (Other)
  Sender: FDA-Public Use
  Company Number: FK201401116

PATIENT
  Sex: 0

DRUGS (3)
  1. PROTAMINE SULFATE INJECTION, USP (PROTAMINE SULFATE) (PROTAMINE SULFATE) [Suspect]
     Indication: PRODUCT USED FOR UNKNOWN INDICATION
     Dosage: OTHER, 20MG-50MG DEPENDING ON THE APTT RESULT, INTRAVENOUS (NOT OTHERWISE SPECIFIED)
     Dates: start: 201403, end: 201403
  2. ANCEF [Suspect]
     Indication: PRODUCT USED FOR UNKNOWN INDICATION
     Dosage: 1 GM, ONCE INTRAVENOUS (NOT OTHERWISE SPECIFIED)
     Route: 042
     Dates: start: 201403, end: 201403
  3. HEPARIN (HEPARIN) [Concomitant]

REACTIONS (5)
  - Chest pain [None]
  - Dyspnoea [None]
  - Hypotension [None]
  - Heart rate irregular [None]
  - Drug interaction [None]
